FAERS Safety Report 9029347 (Version 2)
Quarter: 2013Q1

REPORT INFORMATION
  Report Type: Spontaneous
  Country: US (occurrence: US)
  Receive Date: 20130125
  Receipt Date: 20130301
  Transmission Date: 20140127
  Serious: Yes (Other)
  Sender: FDA-Public Use
  Company Number: US-JNJFOC-20130109589

PATIENT
  Age: 38 Year
  Sex: Male
  Weight: 82.56 kg

DRUGS (4)
  1. REMICADE [Suspect]
     Indication: COLITIS ULCERATIVE
     Dosage: 0, 2, 6
     Route: 042
     Dates: start: 20121108
  2. PREDNISONE [Concomitant]
     Indication: PRODUCT USED FOR UNKNOWN INDICATION
     Route: 065
  3. MULTIVITAMINS [Concomitant]
     Route: 065
     Dates: start: 19900101
  4. FISH OIL [Concomitant]
     Route: 065

REACTIONS (4)
  - Thrombophlebitis [Unknown]
  - Oedema peripheral [Unknown]
  - Pain [Unknown]
  - Deep vein thrombosis [Unknown]
